FAERS Safety Report 4367608-3 (Version None)
Quarter: 2004Q2

REPORT INFORMATION
  Report Type: 
  Country: None (occurrence: None)
  Receive Date: 20040601
  Receipt Date: 20031016
  Transmission Date: 20050107
  Serious: Yes (Hospitalization, Other)
  Sender: FDA-Public Use
  Company Number: US-MERCK-0310USA01957

PATIENT
  Age: 57 Year
  Sex: Female
  Weight: 50 kg

DRUGS (16)
  1. [THERAPY UNSPECIFIED] [Concomitant]
     Indication: PAIN
     Route: 065
     Dates: start: 19900101
  2. ACETAMINOPHEN [Concomitant]
     Route: 065
  3. PERCOCET [Concomitant]
     Indication: FIBROMYALGIA
     Route: 065
  4. SOMA [Concomitant]
     Indication: MUSCLE RELAXANT THERAPY
     Route: 065
  5. ZYRTEC [Concomitant]
     Indication: HYPERSENSITIVITY
     Route: 065
  6. CYANOCOBALAMIN [Concomitant]
     Route: 065
  7. ESTRACE [Concomitant]
     Route: 065
  8. PREMARIN [Concomitant]
     Indication: HORMONE REPLACEMENT THERAPY
     Route: 065
     Dates: start: 19860101, end: 20010901
  9. MOTRIN [Concomitant]
     Indication: FIBROMYALGIA
     Route: 065
     Dates: start: 19900101
  10. OCUFLOX [Concomitant]
     Route: 065
  11. OXYCODONE [Concomitant]
     Route: 065
  12. PREDNISONE [Concomitant]
     Route: 047
  13. VIOXX [Suspect]
     Indication: FIBROMYALGIA
     Route: 048
     Dates: start: 19991001, end: 20020301
  14. VIOXX [Suspect]
     Indication: NECK PAIN
     Route: 048
     Dates: start: 19991001, end: 20020301
  15. LAMISIL [Concomitant]
     Indication: INFECTION
     Route: 065
  16. ULTRAM [Concomitant]
     Route: 065
     Dates: start: 19980101

REACTIONS (27)
  - ANOREXIA [None]
  - ANXIETY [None]
  - BLOOD CHOLESTEROL INCREASED [None]
  - BLOOD PRESSURE INADEQUATELY CONTROLLED [None]
  - BRONCHITIS [None]
  - CACHEXIA [None]
  - CATARACT [None]
  - CEREBROVASCULAR ACCIDENT [None]
  - CONSTIPATION [None]
  - COUGH [None]
  - DEHYDRATION [None]
  - DEPRESSION [None]
  - DIARRHOEA [None]
  - DIVERTICULITIS [None]
  - FATIGUE [None]
  - GASTROENTERITIS VIRAL [None]
  - GASTROINTESTINAL DISORDER [None]
  - INCREASED TENDENCY TO BRUISE [None]
  - IRRITABLE BOWEL SYNDROME [None]
  - MIGRAINE [None]
  - NEURODERMATITIS [None]
  - NORMOCHROMIC NORMOCYTIC ANAEMIA [None]
  - OEDEMA PERIPHERAL [None]
  - OSTEOPENIA [None]
  - PAIN [None]
  - PNEUMONIA [None]
  - RENAL FAILURE ACUTE [None]
